FAERS Safety Report 12479613 (Version 1)
Quarter: 2016Q2

REPORT INFORMATION
  Report Type: Spontaneous
  Country: FR (occurrence: FR)
  Receive Date: 20160620
  Receipt Date: 20160620
  Transmission Date: 20160815
  Serious: Yes (Hospitalization, Other)
  Sender: FDA-Public Use
  Company Number: FR-THE MEDICINES COMPANY-FR-MDCO-16-00197

PATIENT
  Age: 56 Year
  Sex: Female

DRUGS (4)
  1. CORGARD [Concomitant]
     Active Substance: NADOLOL
     Indication: PRODUCT USED FOR UNKNOWN INDICATION
     Dosage: NOT REPORTED
  2. KARDEGIC [Suspect]
     Active Substance: ASPIRIN LYSINE
     Indication: ACUTE MYOCARDIAL INFARCTION
     Dosage: NOT REPORTED
     Dates: start: 20160515, end: 20160519
  3. ANGIOX [Suspect]
     Active Substance: BIVALIRUDIN
     Indication: ACUTE MYOCARDIAL INFARCTION
     Dosage: NOT REPORTED
     Route: 042
     Dates: start: 20160515, end: 20160515
  4. BRILIQUE [Suspect]
     Active Substance: TICAGRELOR
     Indication: ACUTE MYOCARDIAL INFARCTION
     Dosage: NOT REPORTED
     Dates: start: 20160515, end: 20160519

REACTIONS (2)
  - Atrial fibrillation [Unknown]
  - Rectal haemorrhage [Not Recovered/Not Resolved]

NARRATIVE: CASE EVENT DATE: 20160515
